FAERS Safety Report 4477846-7 (Version None)
Quarter: 2004Q4

REPORT INFORMATION
  Report Type: 
  Country: None (occurrence: None)
  Receive Date: 20041014
  Receipt Date: 20041001
  Transmission Date: 20050328
  Serious: Yes (Death)
  Sender: FDA-Public Use
  Company Number: HQWYE634407OCT04

PATIENT
  Age: 26 Year

DRUGS (1)
  1. CORDARONE [Suspect]
     Dosage: PARENTERAL
     Route: 051

REACTIONS (2)
  - DRUG ABUSER [None]
  - INTENTIONAL MISUSE [None]
